FAERS Safety Report 6502834-6 (Version None)
Quarter: 2009Q4

REPORT INFORMATION
  Report Type: 
  Country: None (occurrence: None)
  Receive Date: 20091217
  Receipt Date: 20091116
  Transmission Date: 20100525
  Serious: No
  Sender: FDA-Public Use
  Company Number: US-BAYER-200939685NA

PATIENT
  Sex: Female

DRUGS (1)
  1. DROSPIRENONE AND EHTINYL ESTRADIOL [Suspect]
     Indication: ACNE

REACTIONS (2)
  - ABDOMINAL DISCOMFORT [None]
  - ADVERSE EVENT [None]
